FAERS Safety Report 7522148-5 (Version None)
Quarter: 2011Q2

REPORT INFORMATION
  Report Type: 
  Country: None (occurrence: None)
  Receive Date: 20110603
  Receipt Date: 20110531
  Transmission Date: 20111010
  Serious: Yes (Hospitalization, Other)
  Sender: FDA-Public Use
  Company Number: US-PFIZER INC-2011020802

PATIENT
  Sex: Male

DRUGS (1)
  1. CHANTIX [Suspect]
     Indication: SMOKING CESSATION THERAPY
     Dosage: STARTING MONTHLY PACK AND CONTINUING MONTHLY PACK
     Dates: start: 20080501, end: 20080601

REACTIONS (7)
  - ANXIETY [None]
  - ACUTE STRESS DISORDER [None]
  - SUICIDE ATTEMPT [None]
  - AMNESIA [None]
  - HOMICIDAL IDEATION [None]
  - DEPRESSION [None]
  - AGGRESSION [None]
